FAERS Safety Report 7356450-7 (Version None)
Quarter: 2011Q1

REPORT INFORMATION
  Report Type: 
  Country: None (occurrence: None)
  Receive Date: 20110316
  Receipt Date: 20110310
  Transmission Date: 20110831
  Serious: Yes (Other)
  Sender: FDA-Public Use
  Company Number: BR-PFIZER INC-2010021208

PATIENT
  Age: 72 Year
  Sex: Male
  Weight: 80 kg

DRUGS (4)
  1. XALATAN [Suspect]
     Indication: GLAUCOMA
     Dosage: 3 UG OF LATANOPROST / 300UG OF TIMOLOL MALEATE
     Route: 047
  2. CAPTOPRIL [Suspect]
     Indication: HYPERTENSION
     Dosage: UNK
     Dates: start: 20100401
  3. XALATAN [Suspect]
     Indication: GLAUCOMA
     Dosage: 3 UG, 1X/DAY
     Route: 047
     Dates: start: 20100210
  4. BROMAZEPAM [Concomitant]
     Dosage: 3 MG, AS NEEDED

REACTIONS (10)
  - INFLUENZA [None]
  - COUGH [None]
  - WRONG DRUG ADMINISTERED [None]
  - SINUSITIS [None]
  - DRUG NAME CONFUSION [None]
  - OCULAR DISCOMFORT [None]
  - DRUG DISPENSING ERROR [None]
  - PROSTATE CANCER [None]
  - INTRAOCULAR PRESSURE INCREASED [None]
  - ULCER [None]
